FAERS Safety Report 7238877-7 (Version None)
Quarter: 2011Q1

REPORT INFORMATION
  Report Type: 
  Country: None (occurrence: None)
  Receive Date: 20110121
  Receipt Date: 20110113
  Transmission Date: 20110831
  Serious: Yes (Other)
  Sender: FDA-Public Use
  Company Number: PHHY2011CA03044

PATIENT
  Sex: Female

DRUGS (4)
  1. SANDOSTATIN [Suspect]
     Route: 058
  2. CORTEF [Concomitant]
  3. SANDOSTATIN LAR [Suspect]
     Indication: PITUITARY-DEPENDENT CUSHING'S SYNDROME
     Dosage: 20 MG,EVERY O4 WEEKS
     Route: 030
     Dates: start: 20110112
  4. OCTREOTIDE ACETATE [Concomitant]
     Dosage: UNK
     Route: 058
     Dates: start: 20110101

REACTIONS (6)
  - VOMITING [None]
  - DIZZINESS [None]
  - BLOOD PRESSURE DECREASED [None]
  - FREQUENT BOWEL MOVEMENTS [None]
  - HEART RATE DECREASED [None]
  - FALL [None]
